FAERS Safety Report 8855027 (Version 1)
Quarter: 2012Q4

REPORT INFORMATION
  Report Type: 
  Country: TH (occurrence: TH)
  Receive Date: 20121023
  Receipt Date: 20121023
  Transmission Date: 20130627
  Serious: Yes (Death)
  Sender: FDA-Public Use
  Company Number: PHHY2012TH094419

PATIENT
  Age: 81 Year
  Sex: Female

DRUGS (1)
  1. ZOMETA [Suspect]
     Indication: COLON CANCER
     Dosage: 4 mg, monthly

REACTIONS (4)
  - Colon cancer [Fatal]
  - Metastases to bone [Fatal]
  - Bone pain [Fatal]
  - Hypophagia [Unknown]
